FAERS Safety Report 25659899 (Version 1)
Quarter: 2025Q3

REPORT INFORMATION
  Report Type: Spontaneous
  Country: JP (occurrence: JP)
  Receive Date: 20250808
  Receipt Date: 20250808
  Transmission Date: 20251020
  Serious: Yes (Hospitalization)
  Sender: MYLAN
  Company Number: JP-MYLANLABS-2025M1065201

PATIENT
  Age: 67 Year
  Sex: Male
  Weight: 71.5 kg

DRUGS (12)
  1. NORVASC [Interacting]
     Active Substance: AMLODIPINE BESYLATE
     Indication: Intentional overdose
  2. NORVASC [Interacting]
     Active Substance: AMLODIPINE BESYLATE
     Route: 048
  3. NORVASC [Interacting]
     Active Substance: AMLODIPINE BESYLATE
     Route: 048
  4. NORVASC [Interacting]
     Active Substance: AMLODIPINE BESYLATE
  5. CARVEDILOL [Interacting]
     Active Substance: CARVEDILOL
     Indication: Product used for unknown indication
  6. CARVEDILOL [Interacting]
     Active Substance: CARVEDILOL
     Route: 048
  7. CARVEDILOL [Interacting]
     Active Substance: CARVEDILOL
     Route: 048
  8. CARVEDILOL [Interacting]
     Active Substance: CARVEDILOL
  9. IRBESARTAN [Interacting]
     Active Substance: IRBESARTAN
     Indication: Intentional overdose
  10. IRBESARTAN [Interacting]
     Active Substance: IRBESARTAN
     Route: 048
  11. IRBESARTAN [Interacting]
     Active Substance: IRBESARTAN
     Route: 048
  12. IRBESARTAN [Interacting]
     Active Substance: IRBESARTAN

REACTIONS (5)
  - Movement disorder [Recovered/Resolved]
  - Altered state of consciousness [Recovered/Resolved]
  - Circulatory collapse [Recovered/Resolved]
  - Drug interaction [Recovered/Resolved]
  - Intentional overdose [Recovered/Resolved]
